FAERS Safety Report 4375320-X (Version None)
Quarter: 2004Q2

REPORT INFORMATION
  Report Type: 
  Country: None (occurrence: None)
  Receive Date: 20040610
  Receipt Date: 20040610
  Transmission Date: 20050107
  Serious: Yes (Death)
  Sender: FDA-Public Use
  Company Number: None

PATIENT
  Age: 68 Year
  Sex: Female
  Weight: 56.6996 kg

DRUGS (1)
  1. CRESTOR [Suspect]
     Dosage: 1 DAY ORAL
     Route: 048

REACTIONS (2)
  - INFLUENZA LIKE ILLNESS [None]
  - MUSCULAR WEAKNESS [None]
